FAERS Safety Report 6519330-2 (Version None)
Quarter: 2009Q4

REPORT INFORMATION
  Report Type: 
  Country: None (occurrence: None)
  Receive Date: 20091224
  Receipt Date: 20091224
  Transmission Date: 20100525
  Serious: No
  Sender: FDA-Public Use
  Company Number: None

PATIENT
  Age: 49 Year
  Sex: Male

DRUGS (1)
  1. MORPHINE [Suspect]
     Dosage: 2 MG ONCE IV
     Route: 042
     Dates: start: 20091002, end: 20091002

REACTIONS (2)
  - PRURITUS [None]
  - RASH [None]
